FAERS Safety Report 14207974 (Version 1)
Quarter: 2017Q4

REPORT INFORMATION
  Report Type: Spontaneous
  Country: FR (occurrence: FR)
  Receive Date: 20171121
  Receipt Date: 20171121
  Transmission Date: 20180321
  Serious: Yes (Disabling)
  Sender: FDA-Public Use
  Company Number: FR-MERCK KGAA-2034748

PATIENT
  Age: 72 Year
  Sex: Female

DRUGS (7)
  1. TANGANIL [Concomitant]
     Active Substance: ACETYLLEUCINE
  2. BROMAZEPAM [Concomitant]
     Active Substance: BROMAZEPAM
  3. LERCAN [Concomitant]
     Active Substance: LERCANIDIPINE
  4. LAMALINE [Concomitant]
     Active Substance: ACETAMINOPHEN\CAFFEINE\OPIUM
  5. COTAREG [Concomitant]
     Active Substance: HYDROCHLOROTHIAZIDE\VALSARTAN
  6. SIMVASTATINE [Concomitant]
     Active Substance: SIMVASTATIN
  7. NOVOTHYROX [Suspect]
     Active Substance: LEVOTHYROXINE SODIUM
     Indication: THYROID MASS

REACTIONS (12)
  - Cognitive disorder [Recovering/Resolving]
  - Alopecia [Recovering/Resolving]
  - Vertigo [Recovering/Resolving]
  - Disability [None]
  - Decreased appetite [Recovering/Resolving]
  - Amnesia [Recovering/Resolving]
  - Headache [Recovering/Resolving]
  - Fatigue [Recovering/Resolving]
  - Abdominal pain upper [Recovering/Resolving]
  - Myalgia [Recovering/Resolving]
  - Insomnia [Recovering/Resolving]
  - Diarrhoea [Recovering/Resolving]

NARRATIVE: CASE EVENT DATE: 201706
